FAERS Safety Report 24893020 (Version 1)
Quarter: 2025Q1

REPORT INFORMATION
  Report Type: Spontaneous
  Country: CN (occurrence: CN)
  Receive Date: 20250128
  Receipt Date: 20250128
  Transmission Date: 20250408
  Serious: Yes (Other)
  Sender: STRIDES
  Company Number: CN-STRIDES ARCOLAB LIMITED-2025SP001090

PATIENT
  Age: 32 Year
  Sex: Female

DRUGS (9)
  1. DOXYCYCLINE [Suspect]
     Active Substance: DOXYCYCLINE
     Indication: Palmoplantar pustulosis
     Route: 048
  2. AZITHROMYCIN [Suspect]
     Active Substance: AZITHROMYCIN
     Indication: Behcet^s syndrome
     Route: 065
  3. AZITHROMYCIN [Suspect]
     Active Substance: AZITHROMYCIN
     Indication: Eczema
  4. EBASTINE [Concomitant]
     Active Substance: EBASTINE
     Indication: Behcet^s syndrome
     Route: 065
  5. EBASTINE [Concomitant]
     Active Substance: EBASTINE
     Indication: Eczema
  6. AMMONIUM GLYCYRRHIZATE\CYSTEINE HYDROCHLORIDE\GLYCINE [Concomitant]
     Active Substance: AMMONIUM GLYCYRRHIZATE\CYSTEINE HYDROCHLORIDE\GLYCINE
     Indication: Behcet^s syndrome
     Route: 065
  7. AMMONIUM GLYCYRRHIZATE\CYSTEINE HYDROCHLORIDE\GLYCINE [Concomitant]
     Active Substance: AMMONIUM GLYCYRRHIZATE\CYSTEINE HYDROCHLORIDE\GLYCINE
     Indication: Eczema
  8. MOMETASONE [Concomitant]
     Active Substance: MOMETASONE
     Indication: Behcet^s syndrome
     Route: 065
  9. MOMETASONE [Concomitant]
     Active Substance: MOMETASONE
     Indication: Eczema

REACTIONS (3)
  - Condition aggravated [Recovered/Resolved]
  - Drug ineffective [Unknown]
  - Off label use [Unknown]
